FAERS Safety Report 8266355-5 (Version None)
Quarter: 2012Q2

REPORT INFORMATION
  Report Type: 
  Country: None (occurrence: None)
  Receive Date: 20120406
  Receipt Date: 20120329
  Transmission Date: 20120825
  Serious: Yes (Other)
  Sender: FDA-Public Use
  Company Number: US-FRI-1000029453

PATIENT
  Age: 18 Year
  Sex: Female

DRUGS (3)
  1. LEXAPRO [Suspect]
     Indication: DEPRESSION
  2. LEXAPRO [Suspect]
     Indication: ANXIETY
     Dosage: 10 MG
     Route: 048
     Dates: start: 20120313, end: 20120327
  3. KLONOPIN [Concomitant]

REACTIONS (4)
  - HOMICIDAL IDEATION [None]
  - FEELING ABNORMAL [None]
  - NAUSEA [None]
  - FATIGUE [None]
